FAERS Safety Report 25882810 (Version 1)
Quarter: 2025Q4

REPORT INFORMATION
  Report Type: Spontaneous
  Country: CN (occurrence: CN)
  Receive Date: 20251006
  Receipt Date: 20251006
  Transmission Date: 20260118
  Serious: Yes (Hospitalization)
  Sender: ALCON
  Company Number: CN-ALCON LABORATORIES-ALC2025CN005170

PATIENT
  Age: 59 Year
  Sex: Female

DRUGS (1)
  1. PROPARACAINE HYDROCHLORIDE [Suspect]
     Active Substance: PROPARACAINE HYDROCHLORIDE
     Indication: Local anaesthesia
     Dosage: 1 DROP, TDS
     Dates: start: 20250918, end: 20250918

REACTIONS (1)
  - Muscular weakness [Recovering/Resolving]

NARRATIVE: CASE EVENT DATE: 20250918
